FAERS Safety Report 13539432 (Version 1)
Quarter: 2017Q2

REPORT INFORMATION
  Report Type: Spontaneous
  Country: US (occurrence: US)
  Receive Date: 20170511
  Receipt Date: 20170511
  Transmission Date: 20170830
  Serious: Yes (Life-Threatening, Hospitalization)
  Sender: FDA-Public Use
  Company Number: None

PATIENT
  Age: 63 Year
  Sex: Male

DRUGS (2)
  1. AMIKACIN [Suspect]
     Active Substance: AMIKACIN
     Indication: SURGERY
     Dates: start: 20170309, end: 20170309
  2. LIDOCAINE. [Suspect]
     Active Substance: LIDOCAINE
     Indication: SURGERY
     Dates: start: 20170309, end: 20170309

REACTIONS (6)
  - Cough [None]
  - Pallor [None]
  - Anaphylactic reaction [None]
  - Cyanosis [None]
  - Agitation [None]
  - Cardio-respiratory arrest [None]

NARRATIVE: CASE EVENT DATE: 20170309
